FAERS Safety Report 4388729-5 (Version None)
Quarter: 2004Q3

REPORT INFORMATION
  Report Type: 
  Country: None (occurrence: None)
  Receive Date: 20040701
  Receipt Date: 20040628
  Transmission Date: 20050211
  Serious: Yes (Other)
  Sender: FDA-Public Use
  Company Number: US-GLAXOSMITHKLINE-A0516373A

PATIENT
  Sex: Female

DRUGS (4)
  1. LOTRONEX [Suspect]
     Indication: DRUG USE FOR UNKNOWN INDICATION
     Dosage: .5TAB TWICE PER DAY
     Dates: start: 20040101, end: 20040501
  2. COMBIVIR [Concomitant]
  3. VIRAMUNE [Concomitant]
  4. NEXIUM [Concomitant]

REACTIONS (3)
  - CONSTIPATION [None]
  - DEPRESSION [None]
  - SUICIDAL IDEATION [None]
